FAERS Safety Report 7124666-0 (Version None)
Quarter: 2010Q4

REPORT INFORMATION
  Report Type: 
  Country: None (occurrence: None)
  Receive Date: 20101122
  Receipt Date: 20101122
  Transmission Date: 20110411
  Serious: Yes (Life-Threatening, Other)
  Sender: FDA-Public Use
  Company Number: None

PATIENT
  Age: 15 Year
  Sex: Female
  Weight: 48.0813 kg

DRUGS (17)
  1. INTUNIV [Suspect]
     Indication: PSYCHOMOTOR HYPERACTIVITY
     Dosage: 3 MG QD PO
     Route: 048
     Dates: start: 20101111, end: 20101115
  2. VYVANSE [Concomitant]
  3. SERTRALINE HYDROCHLORIDE [Concomitant]
  4. LEVOTHYROXINE [Concomitant]
  5. NEXIUM [Concomitant]
  6. SYMBICORT [Concomitant]
  7. ZYRTEC [Concomitant]
  8. KEPRA-XR [Concomitant]
  9. FOLIC ACID [Concomitant]
  10. BENADRYL [Concomitant]
  11. M.V.I. [Concomitant]
  12. CALCIUM [Concomitant]
  13. VITAMIN D [Concomitant]
  14. STOOL SOFTENER [Concomitant]
  15. IRON [Concomitant]
  16. XOPENEX [Concomitant]
  17. EPIPEN [Concomitant]

REACTIONS (6)
  - FATIGUE [None]
  - JOINT SWELLING [None]
  - JUVENILE ARTHRITIS [None]
  - MALAISE [None]
  - MOOD SWINGS [None]
  - SUICIDAL IDEATION [None]
